FAERS Safety Report 8791993 (Version 1)
Quarter: 2012Q4

REPORT INFORMATION
  Report Type: 
  Country: FR (occurrence: FR)
  Receive Date: 20120918
  Receipt Date: 20120918
  Transmission Date: 20130627
  Serious: Yes (Hospitalization, Other)
  Sender: FDA-Public Use
  Company Number: FR-PFIZER INC-2012223551

PATIENT
  Age: 65 Year
  Sex: Female

DRUGS (8)
  1. ZYVOXID [Suspect]
     Indication: ARTHRITIS
     Dosage: 600 mg, 2x/day
     Route: 048
     Dates: start: 20120505, end: 20120529
  2. RIFADINE [Suspect]
     Indication: ARTHRITIS
     Dosage: 600 mg, 3x/day
     Route: 048
     Dates: start: 20120505, end: 20120529
  3. COAPROVEL [Concomitant]
     Dosage: 1 DF, 1x/day
  4. AMLODIPINE [Concomitant]
     Dosage: 10 mg, 1x/day
  5. CRESTOR [Concomitant]
     Dosage: 5 mg, 1x/day
  6. INEXIUM [Concomitant]
     Dosage: 20 mg, 1x/day
  7. PARACETAMOL [Concomitant]
  8. ACUPAN [Concomitant]
     Dosage: UNK

REACTIONS (4)
  - Gastrointestinal disorder [Recovered/Resolved]
  - Hepatocellular injury [Recovered/Resolved]
  - Asthenia [Recovering/Resolving]
  - Lactic acidosis [Recovered/Resolved]
